FAERS Safety Report 7420522-9 (Version None)
Quarter: 2011Q2

REPORT INFORMATION
  Report Type: 
  Country: None (occurrence: None)
  Receive Date: 20110418
  Receipt Date: 20110414
  Transmission Date: 20111010
  Serious: No
  Sender: FDA-Public Use
  Company Number: US-PFIZER INC-2011082419

PATIENT
  Age: 74 Year
  Sex: Female

DRUGS (6)
  1. AZITHROMYCIN [Suspect]
  2. ZYLET [Suspect]
  3. MINERAL OIL EMULSION [Suspect]
  4. OPTIVE [Suspect]
  5. DIFLUPREDNATE [Suspect]
  6. XALATAN [Suspect]

REACTIONS (1)
  - DRUG INEFFECTIVE [None]
